FAERS Safety Report 8987619 (Version 1)
Quarter: 2012Q4

REPORT INFORMATION
  Report Type: 
  Country: IT (occurrence: IT)
  Receive Date: 20121227
  Receipt Date: 20121227
  Transmission Date: 20130627
  Serious: Yes (Other)
  Sender: FDA-Public Use
  Company Number: IT-MILLENNIUM PHARMACEUTICALS, INC.-2012-09065

PATIENT

DRUGS (4)
  1. VELCADE [Suspect]
     Indication: MULTIPLE MYELOMA
     Dosage: 1.3 mg/m2, Cyclic
     Route: 042
  2. FOTEMUSTINE [Suspect]
     Indication: MULTIPLE MYELOMA
     Dosage: 80 mg/m2, Cyclic
     Route: 042
  3. FOTEMUSTINE [Suspect]
     Dosage: 100 mg/m2, Cyclic
     Route: 042
  4. DEXAMETHASONE [Suspect]
     Indication: MULTIPLE MYELOMA
     Dosage: 20 mg, Cyclic
     Route: 042

REACTIONS (1)
  - H1N1 influenza [Unknown]
